FAERS Safety Report 22600770 (Version 2)
Quarter: 2023Q2

REPORT INFORMATION
  Report Type: Report from Study
  Country: US (occurrence: US)
  Receive Date: 20230614
  Receipt Date: 20230630
  Transmission Date: 20230722
  Serious: Yes (Other)
  Sender: FDA-Public Use
  Company Number: US-SUN PHARMACEUTICAL INDUSTRIES LTD-2023R1-392832

PATIENT
  Age: 19 Year
  Sex: Female

DRUGS (1)
  1. ISOTRETINOIN [Suspect]
     Active Substance: ISOTRETINOIN
     Indication: Product used for unknown indication
     Dosage: 40 MILLIGRAM, BID
     Route: 065
     Dates: start: 20230112, end: 20230403

REACTIONS (3)
  - Exposure during pregnancy [Unknown]
  - Vaginal haemorrhage [Recovered/Resolved]
  - Treatment noncompliance [Unknown]

NARRATIVE: CASE EVENT DATE: 20230401
